FAERS Safety Report 8477221-4 (Version None)
Quarter: 2012Q2

REPORT INFORMATION
  Report Type: 
  Country: None (occurrence: None)
  Receive Date: 20120619
  Receipt Date: 20120608
  Transmission Date: 20120825
  Serious: Yes (Hospitalization, Disabling, Other)
  Sender: FDA-Public Use
  Company Number: ACO_30707_2012

PATIENT
  Age: 48 Year
  Sex: Female

DRUGS (2)
  1. REBIF [Concomitant]
  2. AMPYRA [Suspect]
     Indication: MULTIPLE SCLEROSIS
     Dosage: 10 MG, BID

REACTIONS (6)
  - SCOLIOSIS [None]
  - BLADDER CANCER [None]
  - EMBOLISM [None]
  - ABASIA [None]
  - MOVEMENT DISORDER [None]
  - MUSCLE SPASMS [None]
